FAERS Safety Report 15426058 (Version 1)
Quarter: 2018Q3

REPORT INFORMATION
  Report Type: Report from Study
  Country: IT (occurrence: IT)
  Receive Date: 20180925
  Receipt Date: 20180925
  Transmission Date: 20181010
  Serious: Yes (Hospitalization)
  Sender: FDA-Public Use
  Company Number: IT-PFIZER INC-2018380173

PATIENT
  Age: 15 Year
  Sex: Male

DRUGS (1)
  1. XANAX [Suspect]
     Active Substance: ALPRAZOLAM
     Dosage: 10 ML, TOTAL
     Route: 048
     Dates: start: 20180513, end: 20180513

REACTIONS (2)
  - Drug abuse [Unknown]
  - Vomiting [Unknown]

NARRATIVE: CASE EVENT DATE: 20180513
